FAERS Safety Report 9440975 (Version 1)
Quarter: 2013Q3

REPORT INFORMATION
  Report Type: Spontaneous
  Country: US (occurrence: US)
  Receive Date: 20130805
  Receipt Date: 20130805
  Transmission Date: 20140515
  Serious: Yes (Hospitalization)
  Sender: FDA-Public Use
  Company Number: US-GENZYME-FABR-1003479

PATIENT
  Age: 75 Year
  Sex: Female

DRUGS (1)
  1. FABRAZYME [Suspect]
     Indication: FABRY^S DISEASE
     Dosage: UNK
     Route: 042

REACTIONS (2)
  - Adverse event [Unknown]
  - Drug dose omission [Unknown]
